FAERS Safety Report 9445114 (Version 1)
Quarter: 2013Q3

REPORT INFORMATION
  Report Type: Spontaneous
  Country: IN (occurrence: None)
  Receive Date: 20130802
  Receipt Date: 20130802
  Transmission Date: 20140515
  Serious: Yes (Other)
  Sender: FDA-Public Use
  Company Number: 2013P1013801

PATIENT
  Sex: 0

DRUGS (1)
  1. LITHIUM [Suspect]
     Indication: BIPOLAR I DISORDER

REACTIONS (10)
  - Toxicity to various agents [None]
  - Delirium [None]
  - Tachycardia [None]
  - Hyperreflexia [None]
  - Confusional state [None]
  - Neurotoxicity [None]
  - Hyperthyroidism [None]
  - Tremor [None]
  - Antipsychotic drug level above therapeutic [None]
  - Haemodialysis [None]
